FAERS Safety Report 4305241-X (Version None)
Quarter: 2004Q1

REPORT INFORMATION
  Report Type: 
  Country: None (occurrence: None)
  Receive Date: 20040226
  Receipt Date: 20031105
  Transmission Date: 20041129
  Serious: No
  Sender: FDA-Public Use
  Company Number: US-BRISTOL-MYERS SQUIBB COMPANY-12427555

PATIENT
  Age: 34 Year
  Sex: Female

DRUGS (10)
  1. DEFINITY [Suspect]
     Dosage: 2/10 OF 1.5 CC DILUTED BOLUS,WITHIN 2 1/2-3 MINUTES A 2ND 2/10 OF 1.5 CC WAS GIVEN
     Route: 040
     Dates: start: 20031027, end: 20031027
  2. KLOR-CON [Concomitant]
     Dosage: 20 MEQ CR TABLET
     Route: 048
  3. FUROSEMIDE [Concomitant]
     Dosage: 80 MG TABLET
     Route: 048
  4. LISINOPRIL [Concomitant]
     Dosage: 20 MG TABLET
     Route: 048
  5. MAGNESIUM OXIDE [Concomitant]
     Dosage: 400 MG TABLET
     Route: 048
  6. METOPROLOL TARTRATE [Concomitant]
  7. SPIRONOLACTONE [Concomitant]
     Dosage: 25 MG TABLET
     Route: 048
  8. ASPIRIN [Concomitant]
  9. EXCEDRIN (MIGRAINE) [Concomitant]
     Dosage: 250-250-65 MG TABLET
  10. ESGIC-PLUS [Concomitant]
     Dosage: 500-50-40 MG CAPLET

REACTIONS (1)
  - BACK PAIN [None]
